FAERS Safety Report 9108555 (Version 1)
Quarter: 2013Q1

REPORT INFORMATION
  Report Type: Spontaneous
  Country: US (occurrence: US)
  Receive Date: 20130222
  Receipt Date: 20130222
  Transmission Date: 20140127
  Serious: Yes (Hospitalization)
  Sender: FDA-Public Use
  Company Number: US-BAYER-2013-021678

PATIENT
  Age: 39 Year
  Sex: Female
  Weight: 101.59 kg

DRUGS (17)
  1. YAZ [Suspect]
  2. YASMIN [Suspect]
     Indication: MENSTRUAL DISORDER
  3. GIANVI [Suspect]
  4. OCELLA [Suspect]
  5. ZARAH [Suspect]
  6. SYNTHROID [Concomitant]
  7. IBUPROFEN [Concomitant]
  8. CYMBALTA [Concomitant]
  9. LIPITOR [Concomitant]
  10. ACTOS PLUS METFORMIN [Concomitant]
  11. LANTUS [Concomitant]
  12. HUMALOG [Concomitant]
  13. BYETTA [Concomitant]
  14. MOTRIN [Concomitant]
  15. THRERAGRAN [Concomitant]
  16. LOVAZA [Concomitant]
  17. ALTACE [Concomitant]

REACTIONS (2)
  - Pulmonary embolism [Recovered/Resolved]
  - Thrombophlebitis superficial [None]
